FAERS Safety Report 4412900-7 (Version None)
Quarter: 2004Q3

REPORT INFORMATION
  Report Type: 
  Country: None (occurrence: None)
  Receive Date: 20040730
  Receipt Date: 20040730
  Transmission Date: 20050211
  Serious: Yes (Hospitalization)
  Sender: FDA-Public Use
  Company Number: None

PATIENT
  Age: 63 Year
  Sex: Female
  Weight: 70.3075 kg

DRUGS (4)
  1. DOXORUBICIN HCL [Suspect]
     Dosage: 145 MG FOR 83.3
     Dates: start: 20040527
  2. CISPLATIN [Suspect]
     Dosage: 50 MG FOR 92.5
     Dates: start: 20040527
  3. PACLITAXEL [Suspect]
     Dosage: 160 MG FOR 298 MG
     Dates: end: 20040530
  4. NEUPOGEN [Suspect]

REACTIONS (1)
  - FEBRILE NEUTROPENIA [None]
